FAERS Safety Report 5334971-6 (Version None)
Quarter: 2007Q1

REPORT INFORMATION
  Report Type: 
  Country: None (occurrence: None)
  Receive Date: 20070308
  Receipt Date: 20070105
  Transmission Date: 20070707
  Serious: No
  Sender: FDA-Public Use
  Company Number: 2007-BP-00263BP

PATIENT
  Age: 70 Year
  Sex: Male

DRUGS (9)
  1. SPIRIVA [Suspect]
     Indication: CHRONIC OBSTRUCTIVE PULMONARY DISEASE
     Dosage: 18 MCG (18 MCG), IH
     Route: 055
     Dates: start: 20061001
  2. THEOPHYLLINE [Concomitant]
  3. PREDNISONE TAB [Concomitant]
  4. SINGULAIR [Concomitant]
  5. NORVASC [Concomitant]
  6. DYAZIDE [Concomitant]
  7. VITAMIN D [Concomitant]
  8. ALBUTEROL [Concomitant]
  9. FORADIL [Concomitant]

REACTIONS (4)
  - EYE DISCHARGE [None]
  - EYE INFECTION [None]
  - HALO VISION [None]
  - OCULAR HYPERAEMIA [None]
